FAERS Safety Report 17520779 (Version 1)
Quarter: 2020Q1

REPORT INFORMATION
  Report Type: Spontaneous
  Country: US (occurrence: US)
  Receive Date: 20200310
  Receipt Date: 20200310
  Transmission Date: 20200409
  Serious: No
  Sender: FDA-Public Use
  Company Number: US-PFIZER INC-2020103082

PATIENT
  Age: 63 Year
  Sex: Female
  Weight: 68.4 kg

DRUGS (1)
  1. ADVIL PM [Suspect]
     Active Substance: DIPHENHYDRAMINE CITRATE\IBUPROFEN
     Indication: TERMINAL INSOMNIA
     Dosage: 2 DF, UNK
     Route: 048
     Dates: start: 20200305, end: 20200305

REACTIONS (2)
  - Foreign body in respiratory tract [Recovered/Resolved]
  - Product size issue [Unknown]

NARRATIVE: CASE EVENT DATE: 20200305
